FAERS Safety Report 13140905 (Version 2)
Quarter: 2017Q1

REPORT INFORMATION
  Report Type: Spontaneous
  Country: US (occurrence: US)
  Receive Date: 20170123
  Receipt Date: 20170330
  Transmission Date: 20170428
  Serious: Yes (Hospitalization)
  Sender: FDA-Public Use
  Company Number: US-NOVOPROD-527217

PATIENT
  Age: 62 Year
  Sex: Male
  Weight: 108.84 kg

DRUGS (4)
  1. JANUVIA [Suspect]
     Active Substance: SITAGLIPTIN PHOSPHATE
     Indication: TYPE 2 DIABETES MELLITUS
     Dosage: UNKNOWN
     Route: 048
  2. LANTUS [Suspect]
     Active Substance: INSULIN GLARGINE
     Indication: TYPE 2 DIABETES MELLITUS
     Dosage: UNKNOWN
     Route: 058
  3. NOVOLOG [Suspect]
     Active Substance: INSULIN ASPART
     Dosage: 100 U, BID IN THE MORNING AND EVENING
     Route: 058
  4. NOVOLOG [Suspect]
     Active Substance: INSULIN ASPART
     Indication: TYPE 2 DIABETES MELLITUS
     Dosage: 60 U, BID IN THE MORNING AND EVENING
     Route: 058

REACTIONS (6)
  - Brain stem thrombosis [Recovered/Resolved]
  - Hyperhidrosis [Recovered/Resolved]
  - Brain stem stroke [Recovered/Resolved with Sequelae]
  - Nausea [Recovered/Resolved]
  - Accelerated hypertension [Unknown]
  - Brain oedema [Recovered/Resolved]

NARRATIVE: CASE EVENT DATE: 20150813
